FAERS Safety Report 12302357 (Version 3)
Quarter: 2016Q2

REPORT INFORMATION
  Report Type: Spontaneous
  Country: DE (occurrence: UA)
  Receive Date: 20160425
  Receipt Date: 20160516
  Transmission Date: 20160815
  Serious: Yes (Other)
  Sender: FDA-Public Use
  Company Number: DE-GILEAD-2016-0210072

PATIENT
  Sex: Male

DRUGS (1)
  1. VIREAD [Suspect]
     Active Substance: TENOFOVIR DISOPROXIL FUMARATE
     Indication: HEPATITIS B
     Dosage: 245 MG, UNK
     Route: 065
     Dates: start: 201510

REACTIONS (2)
  - Gastritis [Unknown]
  - Helicobacter infection [Unknown]
